FAERS Safety Report 22017763 (Version 1)
Quarter: 2023Q1

REPORT INFORMATION
  Report Type: Spontaneous
  Country: None (occurrence: US)
  Receive Date: 20230221
  Receipt Date: 20230221
  Transmission Date: 20230418
  Serious: No
  Sender: FDA-Public Use
  Company Number: US-Crown Laboratories, Inc.-2138262

PATIENT
  Age: 77 Year
  Sex: Male
  Weight: 113.4 kg

DRUGS (2)
  1. ZEASORB AF [Suspect]
     Active Substance: MICONAZOLE NITRATE
     Indication: Tinea cruris
     Route: 061
     Dates: start: 20230131, end: 20230131
  2. ZEASORB AF [Suspect]
     Active Substance: MICONAZOLE NITRATE
     Route: 061
     Dates: start: 20230131, end: 20230131

REACTIONS (6)
  - Dyspnoea [Recovered/Resolved]
  - Rhinorrhoea [Recovered/Resolved]
  - Dizziness [Recovered/Resolved]
  - Pruritus [Recovered/Resolved]
  - Lacrimation increased [Recovered/Resolved]
  - Dizziness [Recovered/Resolved]

NARRATIVE: CASE EVENT DATE: 20230131
